FAERS Safety Report 5142116-0 (Version None)
Quarter: 2006Q4

REPORT INFORMATION
  Report Type: 
  Country: None (occurrence: None)
  Receive Date: 20061102
  Receipt Date: 20061030
  Transmission Date: 20070319
  Serious: Yes (Hospitalization)
  Sender: FDA-Public Use
  Company Number: ES-BRISTOL-MYERS SQUIBB COMPANY-13559299

PATIENT
  Age: 36 Year
  Sex: Female
  Weight: 40 kg

DRUGS (7)
  1. ZERIT [Suspect]
     Indication: HIV INFECTION
     Route: 048
     Dates: start: 20040101
  2. EPIVIR [Suspect]
     Indication: HIV INFECTION
     Route: 048
     Dates: start: 20040101
  3. KALETRA [Suspect]
     Indication: HIV INFECTION
     Route: 048
     Dates: start: 20040101
  4. FOSCAVIR [Suspect]
     Route: 048
     Dates: start: 20040318
  5. SEPTRA [Suspect]
     Route: 048
     Dates: start: 20040101
  6. DIFLUCAN [Suspect]
     Dosage: 50MG/5ML SUSPENSION POWDER
     Dates: start: 20040323
  7. BOREA [Concomitant]
     Route: 048
     Dates: start: 20040101

REACTIONS (1)
  - HALLUCINATION [None]
